FAERS Safety Report 9782609 (Version 2)
Quarter: 2013Q4

REPORT INFORMATION
  Report Type: Spontaneous
  Country: SE (occurrence: None)
  Receive Date: 20131220
  Receipt Date: 20131226
  Transmission Date: 20140711
  Serious: Yes (Other)
  Sender: FDA-Public Use
  Company Number: 2080118

PATIENT
  Age: 67 Year
  Sex: Female

DRUGS (6)
  1. OXALIPLATIN [Suspect]
     Indication: PRODUCT USED FOR UNKNOWN INDICATION
     Dosage: 210 MG MILLIGRAMS, CYCLICAL, INTRAVENOUS (NOT OTHERWISE SPECIFIED)
     Route: 042
     Dates: start: 20131010, end: 20131010
  2. TROPISETRON HYDROCHLORIDE) [Concomitant]
  3. BETAMETHASONE SODIUM PHOSPHATE [Concomitant]
  4. ONDANSETRON [Concomitant]
  5. CAPECITABINE [Concomitant]
  6. GLUCOSE [Concomitant]

REACTIONS (9)
  - Feeling of body temperature change [None]
  - Oesophageal discomfort [None]
  - Dizziness [None]
  - Nausea [None]
  - Muscle spasms [None]
  - Paraesthesia [None]
  - Dysphonia [None]
  - Gait disturbance [None]
  - Neuromyopathy [None]
